FAERS Safety Report 20052233 (Version 1)
Quarter: 2021Q4

REPORT INFORMATION
  Report Type: Spontaneous
  Country: SK (occurrence: SK)
  Receive Date: 20211110
  Receipt Date: 20211110
  Transmission Date: 20220303
  Serious: Yes (Other)
  Sender: FDA-Public Use
  Company Number: SK-ABBVIE-21K-260-4153529-00

PATIENT
  Age: 39 Year
  Sex: Male

DRUGS (1)
  1. VALPROATE SODIUM [Suspect]
     Active Substance: VALPROATE SODIUM
     Indication: Mood disorder due to a general medical condition
     Route: 065

REACTIONS (2)
  - Homicide [Unknown]
  - Aggression [Unknown]

NARRATIVE: CASE EVENT DATE: 20190603
